FAERS Safety Report 6806256-X (Version None)
Quarter: 2010Q2

REPORT INFORMATION
  Report Type: 
  Country: None (occurrence: None)
  Receive Date: 20100629
  Receipt Date: 20080128
  Transmission Date: 20101027
  Serious: Yes (Other)
  Sender: FDA-Public Use
  Company Number: US-PFIZER INC-2008008691

PATIENT
  Sex: Female

DRUGS (1)
  1. NITROSTAT [Suspect]
     Route: 062

REACTIONS (2)
  - ANXIETY [None]
  - HEADACHE [None]
